FAERS Safety Report 8896661 (Version 1)
Quarter: 2012Q4

REPORT INFORMATION
  Report Type: Spontaneous
  Country: US (occurrence: None)
  Receive Date: 20121105
  Receipt Date: 20121105
  Transmission Date: 20130627
  Serious: Yes (Hospitalization, Other)
  Sender: FDA-Public Use
  Company Number: 140808

PATIENT
  Age: 10 Year

DRUGS (1)
  1. CYTARABINE [Suspect]
     Dosage: 4,800 mg over 1 hour
     Dates: start: 20121013

REACTIONS (6)
  - Medication error [None]
  - Medical device complication [None]
  - Incorrect dose administered [None]
  - Pyrexia [None]
  - Nuchal rigidity [None]
  - Headache [None]
